FAERS Safety Report 6285868-9 (Version None)
Quarter: 2009Q3

REPORT INFORMATION
  Report Type: 
  Country: None (occurrence: None)
  Receive Date: 20090724
  Receipt Date: 20090713
  Transmission Date: 20100115
  Serious: Yes (Other)
  Sender: FDA-Public Use
  Company Number: 2009-0342

PATIENT
  Age: 57 Year
  Sex: Male

DRUGS (7)
  1. SOMATULINE DEPOT [Suspect]
     Indication: METASTASES TO LIVER
     Dosage: 90 MG, 1 IN 4 - 2 SUBCUTANEOUS
     Route: 058
     Dates: start: 20080312
  2. SOMATULINE DEPOT [Suspect]
     Indication: NEUROENDOCRINE TUMOUR
     Dosage: 90 MG, 1 IN 4 - 2 SUBCUTANEOUS
     Route: 058
     Dates: start: 20080312
  3. SOMATULINE L.P. 120MG (LANREOTIDE) (LANREOTIDE ACETATE) [Suspect]
     Indication: METASTASES TO LIVER
     Dosage: 120 MG, 1 IN 1 M
     Route: 058
  4. SOMATULINE L.P. 120MG (LANREOTIDE) (LANREOTIDE ACETATE) [Suspect]
     Indication: NEUROENDOCRINE TUMOUR
     Dosage: 120 MG, 1 IN 1 M
     Route: 058
  5. TAHOR 10 (ATORVASTATIN CALCIUM) [Concomitant]
  6. PANTOPRAZOLE SODIUM [Concomitant]
  7. ZOPLICONE (ZOPICLONE) [Concomitant]

REACTIONS (3)
  - INJECTION SITE PRURITUS [None]
  - PRURITUS [None]
  - PRURITUS GENITAL [None]
